FAERS Safety Report 7104473-5 (Version None)
Quarter: 2010Q4

REPORT INFORMATION
  Report Type: 
  Country: None (occurrence: None)
  Receive Date: 20101116
  Receipt Date: 20101104
  Transmission Date: 20110411
  Serious: No
  Sender: FDA-Public Use
  Company Number: US-BIOGENIDEC-2010BI020015

PATIENT
  Sex: Female

DRUGS (1)
  1. TYSABRI [Suspect]
     Indication: MULTIPLE SCLEROSIS
     Route: 042
     Dates: start: 20100301

REACTIONS (14)
  - AGEUSIA [None]
  - ANOSMIA [None]
  - COGNITIVE DISORDER [None]
  - DEPRESSION [None]
  - DIPLOPIA [None]
  - FALL [None]
  - FATIGUE [None]
  - HALLUCINATIONS, MIXED [None]
  - MUSCULOSKELETAL STIFFNESS [None]
  - ORAL HERPES [None]
  - TOOTH EXTRACTION [None]
  - TREMOR [None]
  - VISION BLURRED [None]
  - VISUAL IMPAIRMENT [None]
